FAERS Safety Report 9844339 (Version 1)
Quarter: 2014Q1

REPORT INFORMATION
  Report Type: Report from Study
  Country: JP (occurrence: JP)
  Receive Date: 20140127
  Receipt Date: 20140127
  Transmission Date: 20141002
  Serious: Yes (Other)
  Sender: FDA-Public Use
  Company Number: JP-ROCHE-1333843

PATIENT
  Sex: 0

DRUGS (5)
  1. BEVACIZUMAB [Suspect]
     Indication: COLORECTAL CANCER METASTATIC
     Dosage: 90-MINUTE INTRAVENOUS INFUSION AFTER FOLFIRI ON DAY 3 OF THE 2WEEK CYCLE.
     Route: 042
  2. IRINOTECAN [Interacting]
     Indication: COLORECTAL CANCER METASTATIC
     Route: 042
  3. FOLINIC ACID [Interacting]
     Indication: COLORECTAL CANCER METASTATIC
     Route: 042
  4. FLUOROURACIL [Interacting]
     Indication: COLORECTAL CANCER METASTATIC
     Route: 040
  5. FLUOROURACIL [Interacting]
     Dosage: ON DAY 1
     Route: 042

REACTIONS (15)
  - Leukopenia [Unknown]
  - Neutropenia [Unknown]
  - Diarrhoea [Unknown]
  - Lymphocyte count decreased [Unknown]
  - Hypertension [Unknown]
  - Hypertension [Unknown]
  - Thrombosis [Unknown]
  - Diarrhoea [Unknown]
  - Thrombosis in device [Unknown]
  - Breast abscess [Unknown]
  - Pulmonary embolism [Unknown]
  - Depressed level of consciousness [Unknown]
  - Renal impairment [Unknown]
  - Menstruation irregular [Unknown]
  - Hyperammonaemia [Unknown]
